FAERS Safety Report 11933619 (Version 1)
Quarter: 2016Q1

REPORT INFORMATION
  Report Type: Spontaneous
  Country: US (occurrence: None)
  Receive Date: 20160120
  Receipt Date: 20160120
  Transmission Date: 20160526
  Serious: No
  Sender: FDA-Public Use
  Company Number: None

PATIENT
  Age: 73 Year
  Sex: Female

DRUGS (1)
  1. ACTEMRA [Suspect]
     Active Substance: TOCILIZUMAB
     Indication: RHEUMATOID ARTHRITIS
     Dosage: ACTENURA 162MG/0.9ML ?EVERY WEEK?SUBCUTANEOUS
     Route: 058

REACTIONS (3)
  - Pain [None]
  - Nausea [None]
  - Musculoskeletal stiffness [None]

NARRATIVE: CASE EVENT DATE: 20160116
